FAERS Safety Report 6493420-5 (Version None)
Quarter: 2009Q4

REPORT INFORMATION
  Report Type: 
  Country: None (occurrence: None)
  Receive Date: 20091214
  Receipt Date: 20091102
  Transmission Date: 20100525
  Serious: Yes (Hospitalization, Other)
  Sender: FDA-Public Use
  Company Number: US-MERCK-0911USA00888

PATIENT
  Age: 70 Year
  Sex: Male

DRUGS (1)
  1. SINGULAIR [Suspect]
     Route: 048

REACTIONS (4)
  - ALLERGIC GRANULOMATOUS ANGIITIS [None]
  - ANALGESIC ASTHMA SYNDROME [None]
  - NEUROLOGICAL SYMPTOM [None]
  - SINUS DISORDER [None]
